FAERS Safety Report 7267558-9 (Version None)
Quarter: 2011Q1

REPORT INFORMATION
  Report Type: 
  Country: None (occurrence: None)
  Receive Date: 20110201
  Receipt Date: 20110124
  Transmission Date: 20110831
  Serious: Yes (Hospitalization, Other)
  Sender: FDA-Public Use
  Company Number: US-ELI_LILLY_AND_COMPANY-US201002003442

PATIENT
  Sex: Female
  Weight: 90.703 kg

DRUGS (16)
  1. ACTOS [Concomitant]
     Dosage: 45 MG, DAILY (1/D)
  2. PREVACID [Concomitant]
     Indication: ANTACID THERAPY
     Dosage: 30 MG, DAILY (1/D)
  3. METFORMIN HCL [Concomitant]
     Indication: DIABETES MELLITUS
     Dosage: 1000 MG, 2/D
  4. GLIPIZIDE [Concomitant]
     Indication: DIABETES MELLITUS
     Dosage: 10 MG, 2/D
  5. OXYCODONE HCL [Concomitant]
     Dosage: 1 D/F, AS NEEDED
  6. PLAVIX [Concomitant]
     Dosage: 75 MG, DAILY (1/D)
  7. LEXAPRO [Concomitant]
     Indication: DEPRESSION
  8. LIPITOR [Concomitant]
     Indication: BLOOD CHOLESTEROL
  9. SIMVASTATIN [Concomitant]
     Dosage: 40 MG, DAILY (1/D)
  10. IMDUR [Concomitant]
     Dosage: 30 MG, DAILY (1/D)
  11. DIAZEPAM [Concomitant]
     Dosage: 5 MG, AS NEEDED EACH EVENING
  12. METOPROLOL [Concomitant]
     Dosage: 50 MG, 2/D
  13. HYDROCHLOROTHIAZIDE [Concomitant]
     Dosage: 25 MG, DAILY (1/D)
  14. BYETTA [Suspect]
     Dosage: 10 UG, 2/D
     Route: 065
     Dates: start: 20051025
  15. ASPIRIN /USA/ [Concomitant]
     Dosage: 81 MG, DAILY (1/D)
  16. FLUOXETINE [Concomitant]
     Dosage: 20 MG, DAILY (1/D)

REACTIONS (2)
  - PANCREATITIS [None]
  - ABDOMINAL PAIN [None]
